FAERS Safety Report 4978896-4 (Version None)
Quarter: 2006Q2

REPORT INFORMATION
  Report Type: 
  Country: None (occurrence: None)
  Receive Date: 20060417
  Receipt Date: 20060407
  Transmission Date: 20061013
  Serious: Yes (Hospitalization)
  Sender: FDA-Public Use
  Company Number: 2006-04-0304

PATIENT
  Age: 87 Year
  Sex: Female

DRUGS (6)
  1. CELESTONE SOLUSPAN [Suspect]
     Indication: OSTEOARTHRITIS
     Dosage: ORAL
     Route: 048
     Dates: end: 20060115
  2. KARDEGIC SACHETS (ACETYLSALICYLATE LYSINE) [Concomitant]
  3. MOLSIDOMINE [Concomitant]
  4. KALEORID [Concomitant]
  5. DIGOXIN [Concomitant]
  6. LASILIX [Concomitant]

REACTIONS (5)
  - COR PULMONALE CHRONIC [None]
  - LIPOEDEMA [None]
  - LYMPHOEDEMA [None]
  - OEDEMA PERIPHERAL [None]
  - SWELLING FACE [None]
